FAERS Safety Report 7487647-3 (Version None)
Quarter: 2011Q2

REPORT INFORMATION
  Report Type: 
  Country: None (occurrence: None)
  Receive Date: 20110518
  Receipt Date: 20100124
  Transmission Date: 20111010
  Serious: Yes (Death, Hospitalization, Other)
  Sender: FDA-Public Use
  Company Number: US-BAYER-201012055NA

PATIENT
  Age: 47 Year
  Sex: Male
  Weight: 54.422 kg

DRUGS (17)
  1. HEPARIN [Concomitant]
     Dosage: 28000 U, UNK
     Route: 042
     Dates: start: 20030503, end: 20030503
  2. ZOSYN [Concomitant]
     Dosage: 3.375 G, TID
     Route: 042
     Dates: start: 20030429, end: 20030514
  3. VANCOMYCIN [Concomitant]
     Dosage: 1.5 G, UNK
     Route: 042
     Dates: start: 20030503
  4. LASIX [Concomitant]
     Dosage: UNK
     Route: 042
     Dates: start: 20030401
  5. VANCOMYCIN [Concomitant]
     Dosage: UNK
     Dates: start: 20030401
  6. VERSED [Concomitant]
     Dosage: 14 MG, UNK
     Route: 042
     Dates: start: 20030503, end: 20030503
  7. PLASMA [Concomitant]
     Dosage: 700 ML, UNK
     Dates: start: 20030503
  8. TRASYLOL [Suspect]
     Indication: HEART TRANSPLANT
     Dosage: 200 ML LOADING DOSE FOLLOWED BY 50 ML/HOUR DRIP
     Route: 042
     Dates: start: 20030503
  9. CAPTOPRIL [Concomitant]
     Dosage: 12.5 MG, TID
     Route: 048
     Dates: start: 20030301, end: 20030401
  10. LIDOCAINE HYDROCHLORIDE [Concomitant]
     Dosage: 200 MEQ, UNK
     Route: 042
     Dates: start: 20030503, end: 20030503
  11. RED BLOOD CELLS [Concomitant]
     Dosage: 500 ML, UNK
     Dates: start: 20030503
  12. CIPROFLOXACIN [Concomitant]
     Dosage: 400 MG, TID
     Route: 042
     Dates: start: 20030429, end: 20030514
  13. LISINOPRIL [Concomitant]
     Dosage: 10 MG, QD
     Route: 048
     Dates: start: 20030201, end: 20041201
  14. SUCCINYLCHOLINE CHLORIDE [Concomitant]
     Dosage: 9 MG, UNK
     Route: 042
     Dates: start: 20030503, end: 20030503
  15. MILRINONE [Concomitant]
     Dosage: UNK
     Route: 042
     Dates: start: 20030503, end: 20030503
  16. INSULIN [Concomitant]
     Dosage: 20 U, UNK
     Route: 042
     Dates: start: 20030503, end: 20030503
  17. EPINEPHRINE [Concomitant]
     Dosage: UNK
     Route: 042
     Dates: start: 20030503

REACTIONS (13)
  - DEATH [None]
  - FEAR [None]
  - EMOTIONAL DISTRESS [None]
  - UNEVALUABLE EVENT [None]
  - RENAL INJURY [None]
  - ANHEDONIA [None]
  - MULTI-ORGAN FAILURE [None]
  - RENAL FAILURE [None]
  - RENAL IMPAIRMENT [None]
  - INJURY [None]
  - STRESS [None]
  - ANXIETY [None]
  - PAIN [None]
